FAERS Safety Report 19099167 (Version 12)
Quarter: 2025Q4

REPORT INFORMATION
  Report Type: Report from Study
  Country: US (occurrence: US)
  Receive Date: 20210406
  Receipt Date: 20251218
  Transmission Date: 20260117
  Serious: Yes (Other)
  Sender: TAKEDA
  Company Number: US-TAKEDA-2021TUS020956

PATIENT
  Sex: Female

DRUGS (5)
  1. HUMAN IMMUNOGLOBULIN G [Suspect]
     Active Substance: HUMAN IMMUNOGLOBULIN G
     Indication: Hypogammaglobulinaemia
     Dosage: 30 GRAM, MONTHLY
  2. HUMAN IMMUNOGLOBULIN G [Suspect]
     Active Substance: HUMAN IMMUNOGLOBULIN G
     Indication: Primary immunodeficiency syndrome
     Dosage: 30 GRAM
  3. HUMAN IMMUNOGLOBULIN G [Suspect]
     Active Substance: HUMAN IMMUNOGLOBULIN G
     Dosage: UNK
  4. FORTEO [Suspect]
     Active Substance: TERIPARATIDE
     Indication: Osteoporosis
     Dosage: UNK
  5. COVID-19 VACCINE NOS [Suspect]
     Active Substance: COVID-19 VACCINE
     Indication: Product used for unknown indication
     Dosage: UNK

REACTIONS (22)
  - Cerebrospinal fluid leakage [Unknown]
  - Narcolepsy [Unknown]
  - Angina pectoris [Unknown]
  - Infection [Unknown]
  - Heart rate irregular [Unknown]
  - Cystic fibrosis related diabetes [Unknown]
  - Posture abnormal [Unknown]
  - Joint swelling [Unknown]
  - Cardiac disorder [Unknown]
  - Sleep disorder [Unknown]
  - COVID-19 [Recovered/Resolved]
  - Tinnitus [Unknown]
  - Osteoporosis [Unknown]
  - Sensitivity to weather change [Unknown]
  - Incorrect drug administration rate [Unknown]
  - Bundle branch block [Unknown]
  - Postural orthostatic tachycardia syndrome [Unknown]
  - Spinal pain [Unknown]
  - Insomnia [Unknown]
  - Tachycardia [Unknown]
  - Migraine [Unknown]
  - Vein rupture [Unknown]

NARRATIVE: CASE EVENT DATE: 20230701
